FAERS Safety Report 9266697 (Version 1)
Quarter: 2013Q2

REPORT INFORMATION
  Report Type: Spontaneous
  Country: US (occurrence: US)
  Receive Date: 20130502
  Receipt Date: 20130502
  Transmission Date: 20140414
  Serious: Yes (Disabling, Other)
  Sender: FDA-Public Use
  Company Number: US-PFIZER INC-2013133423

PATIENT
  Age: 59 Year
  Sex: Male
  Weight: 83.9 kg

DRUGS (8)
  1. LYRICA [Suspect]
     Indication: FIBROMYALGIA
     Dosage: 150 MG, 2X/DAY
     Route: 048
     Dates: start: 2008
  2. LYRICA [Suspect]
     Indication: BACK PAIN
  3. LYRICA [Suspect]
     Indication: INTERVERTEBRAL DISC DEGENERATION
  4. LYRICA [Suspect]
     Indication: CONVULSION
  5. DIOVAN HCT [Concomitant]
     Indication: HYPERTENSION
     Dosage: 160/12.5MG, 1X/DAY
  6. HYDROCODONE [Concomitant]
     Indication: ARTHRALGIA
     Dosage: 500 MG, AS NEEDED
  7. MELOXICAM [Concomitant]
     Indication: ARTHRALGIA
     Dosage: 15 MG, 1X/DAY
  8. MELOXICAM [Concomitant]
     Indication: JOINT SWELLING

REACTIONS (5)
  - Fibromyalgia [Unknown]
  - Abasia [Unknown]
  - Activities of daily living impaired [Unknown]
  - Depression [Unknown]
  - Intentional drug misuse [Unknown]
